FAERS Safety Report 7953865-0 (Version None)
Quarter: 2011Q4

REPORT INFORMATION
  Report Type: 
  Country: None (occurrence: None)
  Receive Date: 20111202
  Receipt Date: 20111201
  Transmission Date: 20120403
  Serious: Yes (Death)
  Sender: FDA-Public Use
  Company Number: IE-JNJFOC-20111200684

PATIENT
  Sex: Female

DRUGS (5)
  1. SIMPONI [Suspect]
     Indication: RHEUMATOID ARTHRITIS
     Route: 058
     Dates: start: 20110610
  2. FOLIC ACID [Concomitant]
  3. RILUTEK [Concomitant]
  4. DURAGESIC-100 [Concomitant]
  5. AMITRIPTYLINE HCL [Concomitant]

REACTIONS (1)
  - DEATH [None]
